FAERS Safety Report 6458484-3 (Version None)
Quarter: 2009Q4

REPORT INFORMATION
  Report Type: 
  Country: None (occurrence: None)
  Receive Date: 20091126
  Receipt Date: 20091120
  Transmission Date: 20100525
  Serious: Yes (Hospitalization, Other)
  Sender: FDA-Public Use
  Company Number: US-ASTRAZENECA-2007UW10971

PATIENT
  Age: 21797 Day
  Sex: Female
  Weight: 95.3 kg

DRUGS (26)
  1. SEROQUEL [Suspect]
     Dosage: 25-100 MG
     Route: 048
     Dates: start: 20001206, end: 20060301
  2. SEROQUEL [Suspect]
     Dosage: 25-50 MG
     Route: 048
     Dates: start: 20001206
  3. METHADONE HCL [Concomitant]
  4. LASIX [Concomitant]
     Route: 048
     Dates: start: 19981209
  5. PROTONIX [Concomitant]
     Dates: start: 20031113
  6. ASPIRIN [Concomitant]
     Dates: start: 20031113
  7. ZOCOR [Concomitant]
     Dates: start: 20030717
  8. ZOCOR [Concomitant]
     Dates: end: 19981209
  9. GEMFIBROZIL [Concomitant]
     Dates: start: 20031211
  10. CELEBREX [Concomitant]
     Dates: start: 20030717
  11. CELEXA [Concomitant]
     Dosage: 40-600 MG
     Dates: start: 19990720
  12. ATIVAN [Concomitant]
     Dosage: 1-5 MG
     Dates: start: 19990720
  13. LORTAB [Concomitant]
     Dosage: 7.5 MG DAILY AS NEEDED
     Dates: start: 20030717
  14. SPIRONOLACTONE [Concomitant]
     Dates: start: 20031107
  15. COREG [Concomitant]
     Dates: start: 20030717
  16. PRILOSEC [Concomitant]
     Dosage: 20-40 MG
     Dates: start: 19990119
  17. COZAAR [Concomitant]
     Dosage: 25  50 MG
     Dates: start: 20030717
  18. ISOSORBIDE [Concomitant]
     Dates: start: 20030717
  19. POTASSIUM CHLORIDE [Concomitant]
     Dosage: 3 MG TWO TIMES A DAY, 20 MG DAILY
     Dates: start: 19981209
  20. SKELAXIN [Concomitant]
     Dosage: TWO TIMES A DAY, 800 MG THREE TIMES A DAY
     Dates: start: 20030717
  21. TRICOR [Concomitant]
     Dates: start: 20030717
  22. AMRIX [Concomitant]
     Dates: start: 20051129
  23. PLAVIX [Concomitant]
     Indication: CIRCULATING ANTICOAGULANT
     Dates: start: 20051129
  24. ACTOS [Concomitant]
     Dates: start: 20051129
  25. ZYPREXA [Concomitant]
     Dates: start: 20000628, end: 20001206
  26. REMERON [Concomitant]
     Dates: end: 20000628

REACTIONS (11)
  - ANGINA UNSTABLE [None]
  - ARTERIOSCLEROSIS [None]
  - CARDIAC OPERATION [None]
  - CATHETERISATION CARDIAC [None]
  - CORONARY ARTERY BYPASS [None]
  - CORONARY ARTERY DISEASE [None]
  - LIMB OPERATION [None]
  - MALAISE [None]
  - NEUROPATHY PERIPHERAL [None]
  - THERAPEUTIC PROCEDURE [None]
  - TYPE 2 DIABETES MELLITUS [None]
